FAERS Safety Report 7301608-6 (Version None)
Quarter: 2011Q1

REPORT INFORMATION
  Report Type: 
  Country: None (occurrence: None)
  Receive Date: 20110218
  Receipt Date: 20110204
  Transmission Date: 20110831
  Serious: Yes (Other)
  Sender: FDA-Public Use
  Company Number: DE-MYLANLABS-2011S1002522

PATIENT
  Age: 70 Year
  Sex: Male

DRUGS (8)
  1. BISOPROLOL [Concomitant]
     Indication: PRODUCT USED FOR UNKNOWN INDICATION
  2. TRIAMTERENE AND HYDROCHLOROTHIAZIDE [Suspect]
     Indication: CARDIAC FAILURE
  3. TRIAMTERENE AND HYDROCHLOROTHIAZIDE [Interacting]
     Indication: OEDEMA DUE TO CARDIAC DISEASE
  4. DIGIMERCK [Concomitant]
     Indication: PRODUCT USED FOR UNKNOWN INDICATION
  5. ALLOPURINOL [Concomitant]
     Indication: GOUT
  6. INSULIN [Interacting]
     Indication: TYPE 2 DIABETES MELLITUS
     Dates: start: 20100101
  7. LANSOPRAZOLE [Concomitant]
     Indication: DYSPEPSIA
  8. METFORMIN [Concomitant]
     Indication: DIABETES MELLITUS

REACTIONS (4)
  - DRUG INTERACTION [None]
  - DRUG EFFECT DECREASED [None]
  - WEIGHT INCREASED [None]
  - OEDEMA [None]
